FAERS Safety Report 16288669 (Version 1)
Quarter: 2019Q2

REPORT INFORMATION
  Report Type: Spontaneous
  Country: US (occurrence: US)
  Receive Date: 20190402
  Receipt Date: 20190402
  Transmission Date: 20190711
  Serious: No
  Sender: FDA-Public Use
  Company Number: None

PATIENT
  Age: 79 Year
  Sex: Male

DRUGS (1)
  1. NUCALA [Suspect]
     Active Substance: MEPOLIZUMAB
     Dates: start: 201810

REACTIONS (4)
  - Rash [None]
  - Pruritus [None]
  - Drug ineffective [None]
  - Pruritus genital [None]

NARRATIVE: CASE EVENT DATE: 20181012
